FAERS Safety Report 12446844 (Version 1)
Quarter: 2016Q2

REPORT INFORMATION
  Report Type: Spontaneous
  Country: US (occurrence: US)
  Receive Date: 20160608
  Receipt Date: 20160608
  Transmission Date: 20160815
  Serious: Yes (Other)
  Sender: FDA-Public Use
  Company Number: US-SUN PHARMACEUTICAL INDUSTRIES LTD-2016US-109611

PATIENT
  Age: 55 Year
  Sex: Male

DRUGS (6)
  1. RISPERIDONE. [Suspect]
     Active Substance: RISPERIDONE
     Indication: AGITATION
     Dosage: 0.25 MG AT BEDTIME
     Route: 065
  2. CEFTRIAXONE. [Concomitant]
     Active Substance: CEFTRIAXONE
     Indication: ACUTE ENDOCARDITIS
     Dosage: 2 G, UNK
     Route: 042
  3. CEFTRIAXONE. [Concomitant]
     Active Substance: CEFTRIAXONE
     Indication: STREPTOCOCCAL BACTERAEMIA
     Dosage: 2 G, DAILY
     Route: 042
  4. HALOPERIDOL. [Suspect]
     Active Substance: HALOPERIDOL
     Indication: AGITATION
     Dosage: 2 MG EVERY 12 HOURS AS NEEDED
     Route: 042
  5. PRAZOSIN [Concomitant]
     Active Substance: PRAZOSIN
     Indication: AGITATION
     Dosage: 1 MG, BID
     Route: 048
  6. HALOPERIDOL. [Suspect]
     Active Substance: HALOPERIDOL
     Indication: AGITATION
     Dosage: AS NEEDED
     Route: 048

REACTIONS (2)
  - Dysphagia [Recovering/Resolving]
  - Cogwheel rigidity [Recovering/Resolving]
